FAERS Safety Report 8620212-0 (Version None)
Quarter: 2012Q3

REPORT INFORMATION
  Report Type: 
  Country: None (occurrence: None)
  Receive Date: 20120816
  Receipt Date: 20120816
  Transmission Date: 20120928
  Serious: Yes (Life-Threatening, Hospitalization)
  Sender: FDA-Public Use
  Company Number: None

PATIENT
  Age: 79 Year
  Sex: Female
  Weight: 72.5 kg

DRUGS (19)
  1. CEFAZOLIN [Concomitant]
  2. ENOXAPARIN [Concomitant]
  3. ACETAMINOPHEN [Concomitant]
  4. MAGNESIUM HYDROXIDE TAB [Concomitant]
  5. FUROSEMIDE [Concomitant]
  6. HYDROMORPHONE HCL [Concomitant]
  7. MORPHINE [Concomitant]
  8. RIVAROXABAN 10 MG JANSSEN PHARMACEUTICALS, [Suspect]
     Dates: start: 20120309, end: 20120310
  9. SEQUENTIAL COMPRESSION DEVICE [Concomitant]
  10. BISACODYL [Concomitant]
  11. SIMVASTATIN [Concomitant]
  12. HYDROCODONE [Concomitant]
  13. CELECOXIB [Concomitant]
  14. DOCUSATE [Concomitant]
  15. POTASSIUM CHLORIDE [Concomitant]
  16. INSULIN ASPART [Concomitant]
  17. PREGABALIN [Concomitant]
  18. HEPARIN [Concomitant]
  19. WARFARIN SODIUM [Concomitant]

REACTIONS (3)
  - ORTHOSTATIC HYPOTENSION [None]
  - OXYGEN SATURATION DECREASED [None]
  - PULMONARY EMBOLISM [None]
